FAERS Safety Report 8574896-6 (Version None)
Quarter: 2012Q3

REPORT INFORMATION
  Report Type: 
  Country: None (occurrence: None)
  Receive Date: 20120807
  Receipt Date: 20120727
  Transmission Date: 20120928
  Serious: Yes (Hospitalization, Other)
  Sender: FDA-Public Use
  Company Number: JP-VERTEX PHARMACEUTICALS INC.-AE-2012-011262

PATIENT
  Age: 62 Year
  Sex: Male

DRUGS (15)
  1. TELAVIC [Suspect]
     Indication: HEPATITIS C
     Route: 048
     Dates: start: 20120412, end: 20120524
  2. REBETOL [Concomitant]
     Route: 048
     Dates: start: 20120427
  3. URSO 250 [Concomitant]
     Route: 048
  4. AMLODIPINE BESYLATE [Concomitant]
     Route: 048
     Dates: end: 20120531
  5. REBETOL [Concomitant]
     Indication: HEPATITIS C
     Route: 048
     Dates: end: 20120426
  6. LOXONIN [Concomitant]
     Route: 048
     Dates: start: 20120419, end: 20120531
  7. REBETOL [Concomitant]
     Route: 048
     Dates: start: 20120502
  8. REBETOL [Concomitant]
     Route: 048
     Dates: start: 20120510, end: 20120530
  9. TELAVIC [Suspect]
     Route: 048
     Dates: start: 20120525, end: 20120530
  10. JANUVIA [Concomitant]
     Route: 048
     Dates: end: 20120531
  11. AMARYL [Concomitant]
     Route: 048
     Dates: start: 20120416, end: 20120517
  12. PEG-INTRON [Concomitant]
     Indication: HEPATITIS C
     Route: 058
     Dates: start: 20120412
  13. RABEPRAZOLE SODIUM [Concomitant]
     Route: 048
  14. PEG-INTRON [Concomitant]
     Route: 058
     Dates: start: 20120510, end: 20120524
  15. AMOBAN [Concomitant]
     Route: 048
     Dates: end: 20120531

REACTIONS (3)
  - ANAEMIA [None]
  - DECREASED APPETITE [None]
  - RENAL DISORDER [None]
